FAERS Safety Report 4826746-9 (Version None)
Quarter: 2005Q4

REPORT INFORMATION
  Report Type: 
  Country: None (occurrence: None)
  Receive Date: 20051111
  Receipt Date: 20051111
  Transmission Date: 20060501
  Serious: Yes (Other)
  Sender: FDA-Public Use
  Company Number: None

PATIENT
  Sex: Male
  Weight: 91.4 kg

DRUGS (1)
  1. LEVOFLOXACIN [Suspect]
     Indication: OSTEOMYELITIS
     Dosage: 250       DAILY   PO
     Route: 048
     Dates: start: 20051101, end: 20051104

REACTIONS (2)
  - PYREXIA [None]
  - RASH PRURITIC [None]
